FAERS Safety Report 12558557 (Version 1)
Quarter: 2016Q3

REPORT INFORMATION
  Report Type: Spontaneous
  Country: SE (occurrence: SE)
  Receive Date: 20160714
  Receipt Date: 20160714
  Transmission Date: 20161109
  Serious: Yes (Hospitalization)
  Sender: FDA-Public Use
  Company Number: SE-JNJFOC-20160703136

PATIENT
  Age: 22 Year
  Sex: Female

DRUGS (5)
  1. IPREN [Suspect]
     Active Substance: IBUPROFEN
     Indication: SUICIDAL IDEATION
     Dosage: 20 PIECES OF 400 MG
     Route: 065
     Dates: start: 20160517, end: 20160517
  2. SERTRALINE [Suspect]
     Active Substance: SERTRALINE HYDROCHLORIDE
     Indication: SUICIDAL IDEATION
     Dosage: 10-20 PIECES OF  50MG
     Route: 065
     Dates: start: 20160517, end: 20160517
  3. SERTRALINE [Suspect]
     Active Substance: SERTRALINE HYDROCHLORIDE
     Indication: AGORAPHOBIA
     Dosage: 10-20 PIECES OF  50MG
     Route: 065
     Dates: start: 20160517, end: 20160517
  4. SERTRALINE [Suspect]
     Active Substance: SERTRALINE HYDROCHLORIDE
     Indication: PANIC DISORDER
     Dosage: 10-20 PIECES OF  50MG
     Route: 065
     Dates: start: 20160517, end: 20160517
  5. IPREN [Suspect]
     Active Substance: IBUPROFEN
     Route: 065

REACTIONS (4)
  - Depressed level of consciousness [Unknown]
  - Overdose [Unknown]
  - Suicidal ideation [Unknown]
  - Toxicity to various agents [Unknown]

NARRATIVE: CASE EVENT DATE: 20160517
